FAERS Safety Report 4374584-6 (Version None)
Quarter: 2004Q2

REPORT INFORMATION
  Report Type: 
  Country: None (occurrence: None)
  Receive Date: 20040604
  Receipt Date: 20040526
  Transmission Date: 20050107
  Serious: Yes (Other)
  Sender: FDA-Public Use
  Company Number: 2004035330

PATIENT
  Age: 63 Year
  Sex: Male
  Weight: 72.5755 kg

DRUGS (4)
  1. LIPITOR [Suspect]
     Indication: BLOOD CHOLESTEROL INCREASED
     Dosage: 10 MG (1 IN 1 D), ORAL
     Route: 048
     Dates: start: 20030101
  2. CLOPIDOGREL BISULFATE [Concomitant]
  3. ACETYLSALICYLIC ACID SRT [Concomitant]
  4. LABETALOL HCL [Concomitant]

REACTIONS (1)
  - EMBOLISM [None]
